FAERS Safety Report 5799446-9 (Version None)
Quarter: 2008Q3

REPORT INFORMATION
  Report Type: 
  Country: None (occurrence: None)
  Receive Date: 20080703
  Receipt Date: 20080701
  Transmission Date: 20090109
  Serious: Yes (Life-Threatening)
  Sender: FDA-Public Use
  Company Number: IT-BRISTOL-MYERS SQUIBB COMPANY-14248512

PATIENT
  Age: 82 Year
  Sex: Male

DRUGS (7)
  1. CARBIDOPA + LEVODOPA [Suspect]
     Indication: PARKINSON'S DISEASE
     Dosage: 1 DOSAGEFORM = 100 +25MG. WITHDRAWN ON 08JUN08
     Route: 048
     Dates: start: 20080603, end: 20080607
  2. JUMEX [Suspect]
     Indication: PARKINSON'S DISEASE
     Route: 048
     Dates: start: 20080603, end: 20080608
  3. ASPIRIN [Concomitant]
  4. MICARDIS HCT [Concomitant]
  5. EUTIROX [Concomitant]
  6. LIPONORM [Concomitant]
  7. OMNIC [Concomitant]

REACTIONS (3)
  - CONTUSION [None]
  - FALL [None]
  - SYNCOPE [None]
